FAERS Safety Report 4686409-X (Version None)
Quarter: 2005Q2

REPORT INFORMATION
  Report Type: 
  Country: None (occurrence: None)
  Receive Date: 20050606
  Receipt Date: 20050526
  Transmission Date: 20051028
  Serious: Yes (Other)
  Sender: FDA-Public Use
  Company Number: NL-2005-002445

PATIENT
  Age: 52 Year
  Sex: Female

DRUGS (5)
  1. FLUDARA [Suspect]
     Indication: NON-HODGKIN'S LYMPHOMA
     Dosage: 70 MG, CYCLE X 5D, ORAL
     Route: 048
     Dates: start: 20040607, end: 20040611
  2. FLUDARA [Suspect]
     Indication: NON-HODGKIN'S LYMPHOMA
     Dosage: 70 MG, CYCLE X 5D, ORAL
     Route: 048
     Dates: start: 20040705, end: 20040709
  3. FLUDARA [Suspect]
     Indication: NON-HODGKIN'S LYMPHOMA
     Dosage: 70 MG, CYCLE X 5D, ORAL
     Route: 048
     Dates: start: 20040823, end: 20040827
  4. FLUDARA [Suspect]
     Indication: NON-HODGKIN'S LYMPHOMA
     Dosage: 70 MG, CYCLE X 5D, ORAL
     Route: 048
     Dates: start: 20040920, end: 20040924
  5. AMOXICILLIN [Concomitant]

REACTIONS (1)
  - ERYTHEMA MULTIFORME [None]
